FAERS Safety Report 7213267-1 (Version None)
Quarter: 2010Q4

REPORT INFORMATION
  Report Type: 
  Country: None (occurrence: None)
  Receive Date: 20101229
  Receipt Date: 20101214
  Transmission Date: 20110411
  Serious: Yes (Death)
  Sender: FDA-Public Use
  Company Number: 2010005531

PATIENT
  Age: 84 Year
  Sex: Female

DRUGS (8)
  1. ERLOTINIB HYDROCHLORIDE [Suspect]
     Indication: NON-SMALL CELL LUNG CANCER
     Dosage: 150 MG, ONE TIME PER DAY, ORAL
     Route: 048
     Dates: start: 20101112, end: 20101203
  2. FISIOGEL [Suspect]
     Indication: NON-SMALL CELL LUNG CANCER
     Dosage: 2 TIMES PER DAY, TOPICAL
     Route: 061
     Dates: start: 20101117
  3. PANTOPRAZOLE SODIUM [Concomitant]
  4. LASIX [Concomitant]
  5. ALDACTONE [Concomitant]
  6. ANCORON (AMIODARONE) [Concomitant]
  7. XYLOCAINE [Concomitant]
  8. FLOMAX [Concomitant]

REACTIONS (5)
  - DIARRHOEA HAEMORRHAGIC [None]
  - DYSPNOEA [None]
  - HAEMORRHOIDS [None]
  - RENAL FAILURE [None]
  - VARICOSE VEIN [None]
